FAERS Safety Report 21962804 (Version 1)
Quarter: 2023Q1

REPORT INFORMATION
  Report Type: Spontaneous
  Country: US (occurrence: None)
  Receive Date: 20230205
  Receipt Date: 20230205
  Transmission Date: 20230417
  Serious: Yes (Other)
  Sender: FDA-Public Use
  Company Number: None

PATIENT
  Age: 50 Year
  Sex: Male
  Weight: 76.5 kg

DRUGS (2)
  1. ARTIFICIAL TEARS LUBRICANT EYE DROPS (CARBOXYMETHYLCELLULOSE SODIUM) [Suspect]
     Active Substance: CARBOXYMETHYLCELLULOSE SODIUM
     Indication: Dry eye
     Dosage: FREQUENCY : AT BEDTIME;?
     Route: 047
  2. ARMOR THROID [Concomitant]

REACTIONS (4)
  - Recalled product [None]
  - Product contamination [None]
  - Instillation site burn [None]
  - Vision blurred [None]

NARRATIVE: CASE EVENT DATE: 20230102
